FAERS Safety Report 21200946 (Version 1)
Quarter: 2022Q3

REPORT INFORMATION
  Report Type: Report from Study
  Country: US (occurrence: US)
  Receive Date: 20220811
  Receipt Date: 20220811
  Transmission Date: 20221027
  Serious: Yes (Other)
  Sender: FDA-Public Use
  Company Number: US-BAYER-2022A109881

PATIENT
  Age: 69 Year
  Sex: Female

DRUGS (2)
  1. ADEMPAS [Suspect]
     Active Substance: RIOCIGUAT
     Indication: Pulmonary arterial hypertension
     Dosage: UNK
  2. ADEMPAS [Suspect]
     Active Substance: RIOCIGUAT
     Indication: Pulmonary arterial hypertension
     Dosage: 2.5 MG, TID
     Route: 048
     Dates: start: 20220520

REACTIONS (10)
  - Syncope [None]
  - Dyspnoea at rest [None]
  - Bendopnoea [None]
  - Dyspnoea exertional [None]
  - Chest pain [None]
  - Fatigue [None]
  - Dizziness [None]
  - Peripheral swelling [None]
  - Weight abnormal [None]
  - Joint swelling [None]
